FAERS Safety Report 22270296 (Version 3)
Quarter: 2023Q2

REPORT INFORMATION
  Report Type: Report from Study
  Country: US (occurrence: US)
  Receive Date: 20230501
  Receipt Date: 20230627
  Transmission Date: 20230722
  Serious: Yes (Other)
  Sender: FDA-Public Use
  Company Number: US-Merck Healthcare KGaA-9342939

PATIENT
  Age: 21 Year
  Sex: Female
  Weight: 108 kg

DRUGS (2)
  1. MAVENCLAD [Suspect]
     Active Substance: CLADRIBINE
     Indication: Multiple sclerosis
     Dosage: YEAR ONE CYCLE ONE
     Route: 048
     Dates: start: 20220610, end: 20220614
  2. MAVENCLAD [Suspect]
     Active Substance: CLADRIBINE
     Dosage: YEAR ONE CYCLE TWO
     Route: 048
     Dates: start: 20220707, end: 20220711

REACTIONS (26)
  - Dyspnoea at rest [Unknown]
  - Spinal disorder [Unknown]
  - Neuropathy peripheral [Unknown]
  - Limb mass [Not Recovered/Not Resolved]
  - Hypersomnia [Unknown]
  - Asthenia [Unknown]
  - Generalised oedema [Recovering/Resolving]
  - Blood potassium decreased [Not Recovered/Not Resolved]
  - Inflammation [Unknown]
  - Vitamin B12 decreased [Unknown]
  - Vitamin D decreased [Unknown]
  - Chest pain [Unknown]
  - Migraine [Unknown]
  - Vision blurred [Not Recovered/Not Resolved]
  - Decreased appetite [Not Recovered/Not Resolved]
  - Burning sensation [Unknown]
  - Back disorder [Unknown]
  - Feeling abnormal [Unknown]
  - Fatigue [Unknown]
  - Headache [Unknown]
  - Fibromyalgia [Unknown]
  - Pain [Unknown]
  - Sensory loss [Unknown]
  - Muscle spasticity [Unknown]
  - Gait disturbance [Unknown]
  - Hypoaesthesia [Recovered/Resolved]

NARRATIVE: CASE EVENT DATE: 20220801
